FAERS Safety Report 23560012 (Version 3)
Quarter: 2025Q1

REPORT INFORMATION
  Report Type: Spontaneous
  Country: GR (occurrence: GR)
  Receive Date: 20240223
  Receipt Date: 20250128
  Transmission Date: 20250408
  Serious: Yes (Other)
  Sender: SANDOZ
  Company Number: GR-AMGEN-GRCSP2023223701

PATIENT
  Age: 14 Year
  Sex: Female

DRUGS (4)
  1. ADALIMUMAB [Suspect]
     Active Substance: ADALIMUMAB
     Indication: Juvenile spondyloarthritis
     Dosage: 40 MILLIGRAM, Q2WK
     Route: 065
  2. PREDNISOLONE [Concomitant]
     Active Substance: PREDNISOLONE
     Indication: Product used for unknown indication
     Route: 065
  3. SECUKINUMAB [Concomitant]
     Active Substance: SECUKINUMAB
     Indication: Product used for unknown indication
     Route: 065
  4. SECUKINUMAB [Concomitant]
     Active Substance: SECUKINUMAB
     Route: 065

REACTIONS (3)
  - Myocarditis [Recovered/Resolved]
  - Ejection fraction decreased [Unknown]
  - Off label use [Unknown]
